FAERS Safety Report 9690879 (Version 1)
Quarter: 2013Q4

REPORT INFORMATION
  Report Type: Spontaneous
  Country: US (occurrence: None)
  Receive Date: 20131114
  Receipt Date: 20131114
  Transmission Date: 20140711
  Serious: Yes (Hospitalization)
  Sender: FDA-Public Use
  Company Number: None

PATIENT
  Age: 15 Year
  Sex: Male
  Weight: 52.16 kg

DRUGS (1)
  1. ZITHROMAX [Suspect]
     Indication: DIARRHOEA INFECTIOUS
     Dosage: 500MG Q24H IVPB ?11-5-13 0909, 11-6-13 0928 + 1245
     Dates: start: 20131105

REACTIONS (9)
  - Nausea [None]
  - Vomiting [None]
  - Joint stiffness [None]
  - Pain in jaw [None]
  - Joint dislocation [None]
  - Musculoskeletal stiffness [None]
  - Neck pain [None]
  - Dystonia [None]
  - Drug hypersensitivity [None]
